FAERS Safety Report 4425974-4 (Version None)
Quarter: 2004Q3

REPORT INFORMATION
  Report Type: 
  Country: None (occurrence: None)
  Receive Date: 20040719
  Receipt Date: 20030909
  Transmission Date: 20050211
  Serious: Yes (Hospitalization)
  Sender: FDA-Public Use
  Company Number: 179122

PATIENT
  Age: 45 Year
  Sex: Male

DRUGS (1)
  1. AVONEX [Suspect]

REACTIONS (6)
  - ABASIA [None]
  - CONVULSION [None]
  - FALL [None]
  - INFLUENZA LIKE ILLNESS [None]
  - IRRITABILITY [None]
  - MOBILITY DECREASED [None]
